FAERS Safety Report 6758079-8 (Version None)
Quarter: 2010Q2

REPORT INFORMATION
  Report Type: 
  Country: None (occurrence: None)
  Receive Date: 20100607
  Receipt Date: 20100525
  Transmission Date: 20101027
  Serious: Yes (Hospitalization)
  Sender: FDA-Public Use
  Company Number: HU-ELI_LILLY_AND_COMPANY-HU201005005556

PATIENT
  Age: 83 Year
  Sex: Female

DRUGS (5)
  1. FORTEO [Suspect]
     Indication: OSTEOPOROSIS
     Dosage: 20 UG/80 UL, DAILY (1/D)
     Route: 058
     Dates: start: 20091027
  2. CALCIUM CARBONATE [Concomitant]
  3. VITAMIN D3 [Concomitant]
  4. ANALGESICS [Concomitant]
  5. ERGOTOP [Concomitant]

REACTIONS (2)
  - FALL [None]
  - INTERVERTEBRAL DISC COMPRESSION [None]
